FAERS Safety Report 5417321-6 (Version None)
Quarter: 2007Q3

REPORT INFORMATION
  Report Type: 
  Country: None (occurrence: None)
  Receive Date: 20070816
  Receipt Date: 20070808
  Transmission Date: 20080115
  Serious: Yes (Other)
  Sender: FDA-Public Use
  Company Number: JP-GENENTECH-103344

PATIENT
  Sex: Male
  Weight: 95 kg

DRUGS (11)
  1. RITUXAN [Suspect]
     Indication: MANTLE CELL LYMPHOMA
     Dosage: 100 MG, SINGLE
     Route: 042
     Dates: start: 20020122, end: 20020307
  2. RITUXAN [Suspect]
     Route: 042
     Dates: start: 20020129
  3. ENALAPRIL [Concomitant]
  4. ALLOPURINOL [Concomitant]
  5. LANSOPRAZOLE [Concomitant]
  6. REBAMIPIDE [Concomitant]
  7. FLUCONAZOLE [Concomitant]
  8. MAGNESIUM OXIDE [Concomitant]
  9. SPIRONOLACTONE [Concomitant]
  10. AZOSEMIDE [Concomitant]
  11. TRICHLORMETHIAZIDE [Concomitant]

REACTIONS (1)
  - HEPATITIS C [None]
